FAERS Safety Report 18956096 (Version 2)
Quarter: 2021Q3

REPORT INFORMATION
  Report Type: Spontaneous
  Country: MX (occurrence: MX)
  Receive Date: 20210301
  Receipt Date: 20210720
  Transmission Date: 20211014
  Serious: Yes (Other)
  Sender: FDA-Public Use
  Company Number: MX-ASTRAZENECA-2021A035083

PATIENT
  Age: 2 Month
  Sex: Male
  Weight: 4 kg

DRUGS (11)
  1. NEXIUM [Suspect]
     Active Substance: ESOMEPRAZOLE MAGNESIUM
     Indication: REFLUX GASTRITIS
     Route: 048
  2. UNAMOL [Concomitant]
     Dosage: 1 MG PER 1 ML 0.2 TO 0.4 ML EVERY 8 HOURS
  3. EBORIX [Concomitant]
     Dosage: 6.25 PER ML 1 ML EVERY 8 HOURS
  4. NEXIUM [Suspect]
     Active Substance: ESOMEPRAZOLE MAGNESIUM
     Indication: GASTRIC DISORDER
     Route: 048
  5. NEXIUM [Suspect]
     Active Substance: ESOMEPRAZOLE MAGNESIUM
     Indication: GASTRIC DISORDER
     Route: 048
     Dates: start: 20210223, end: 202105
  6. NEXIUM [Suspect]
     Active Substance: ESOMEPRAZOLE MAGNESIUM
     Indication: GASTRIC DISORDER
     Dosage: 10 MG DISSOLVES THE ENVELOPE IN 5 ML AND GIVES HALF A PATIENT (OFF LABEL USE) AND HALF TO THE OTH...
     Route: 048
     Dates: start: 20210124
  7. EVORI [Concomitant]
     Dosage: 6.25 PER ML 1 ML EVERY 8 HOURS
  8. RIOPAN [Concomitant]
  9. NEXIUM [Suspect]
     Active Substance: ESOMEPRAZOLE MAGNESIUM
     Indication: REFLUX GASTRITIS
     Route: 048
     Dates: start: 20210223, end: 202105
  10. NEXIUM [Suspect]
     Active Substance: ESOMEPRAZOLE MAGNESIUM
     Indication: REFLUX GASTRITIS
     Dosage: 10 MG DISSOLVES THE ENVELOPE IN 5 ML AND GIVES HALF A PATIENT (OFF LABEL USE) AND HALF TO THE OTH...
     Route: 048
     Dates: start: 20210124
  11. UNIVAL [Concomitant]
     Dosage: 1 DROP OF ONE D3 DROP

REACTIONS (7)
  - Off label use [Recovered/Resolved]
  - Constipation [Recovered/Resolved]
  - Abnormal faeces [Recovered/Resolved]
  - Faeces discoloured [Unknown]
  - Gastrooesophageal reflux disease [Recovered/Resolved]
  - Product residue present [Recovered/Resolved]
  - Restlessness [Recovered/Resolved]

NARRATIVE: CASE EVENT DATE: 20210124
